FAERS Safety Report 9528693 (Version 1)
Quarter: 2013Q1

REPORT INFORMATION
  Report Type: Spontaneous
  Country: US (occurrence: None)
  Receive Date: 20130329
  Receipt Date: 20130329
  Transmission Date: 20140127
  Serious: No
  Sender: FDA-Public Use
  Company Number: 1000042329

PATIENT
  Age: 79 Year
  Sex: Male

DRUGS (3)
  1. LINZESS (LINACLOTIDE) (CAPSULES) [Suspect]
     Indication: IRRITABLE BOWEL SYNDROME
     Dosage: 290MCG (290MCG, 1 IN 1)
     Route: 048
     Dates: start: 201301
  2. LINZESS (LINACLOTIDE) (CAPSULES) [Suspect]
     Indication: CONSTIPATION
     Dosage: 290MCG (290MCG, 1 IN 1)
     Route: 048
     Dates: start: 201301
  3. OMEPRAZOLE (OMEPRAZOLE) [Suspect]
     Dosage: 20MG BID (20MG, 2 IN 1D)

REACTIONS (2)
  - Bronchospasm [None]
  - Dyspnoea [None]
